FAERS Safety Report 14843679 (Version 2)
Quarter: 2018Q2

REPORT INFORMATION
  Report Type: Report from Study
  Country: IT (occurrence: US)
  Receive Date: 20180503
  Receipt Date: 20180508
  Transmission Date: 20180711
  Serious: Yes (Hospitalization, Other)
  Sender: FDA-Public Use
  Company Number: IT-ASTRAZENECA-2018SE56091

PATIENT
  Age: 65 Year
  Sex: Male

DRUGS (11)
  1. AMLODIPINE [Interacting]
     Active Substance: AMLODIPINE BESYLATE
     Route: 065
  2. ROSUVASTATIN. [Interacting]
     Active Substance: ROSUVASTATIN
     Route: 048
  3. METFORMIN [Interacting]
     Active Substance: METFORMIN HYDROCHLORIDE
     Route: 065
  4. INFLUENZA VIRUS VACCINE MONOVALENT [Interacting]
     Active Substance: INFLUENZA VIRUS VACCINE
     Route: 065
  5. LEVETIRACETAM. [Interacting]
     Active Substance: LEVETIRACETAM
     Route: 065
  6. CARBAMAZEPINE. [Interacting]
     Active Substance: CARBAMAZEPINE
     Indication: EPILEPSY
     Route: 065
  7. LOSARTAN. [Interacting]
     Active Substance: LOSARTAN
     Route: 065
  8. ATENOLOL. [Suspect]
     Active Substance: ATENOLOL
     Route: 065
  9. TAMSULOSIN [Interacting]
     Active Substance: TAMSULOSIN
     Route: 065
  10. INSULIN [Interacting]
     Active Substance: INSULIN NOS
     Route: 065
  11. HYDROCHLOROTHIAZIDE AND LISINOPRIL [Interacting]
     Active Substance: HYDROCHLOROTHIAZIDE\LISINOPRIL
     Route: 048

REACTIONS (2)
  - Guillain-Barre syndrome [Unknown]
  - Drug interaction [Unknown]
